FAERS Safety Report 6219114-9 (Version None)
Quarter: 2009Q2

REPORT INFORMATION
  Report Type: 
  Country: None (occurrence: None)
  Receive Date: 20090605
  Receipt Date: 20090521
  Transmission Date: 20091009
  Serious: Yes (Hospitalization)
  Sender: FDA-Public Use
  Company Number: 2009001508

PATIENT
  Sex: Female
  Weight: 81 kg

DRUGS (4)
  1. ERLOTINIB (ERLOTINIB) (TABLET) (ERLOTINIB) [Suspect]
     Indication: LUNG ADENOCARCINOMA
     Dosage: (150 MG,QD), ORAL
     Route: 048
     Dates: start: 20090417, end: 20090506
  2. PACLITAXEL [Suspect]
     Indication: LUNG ADENOCARCINOMA
     Dosage: (200 MG/M2), INTRAVENOUS
     Route: 042
     Dates: start: 20090417, end: 20090417
  3. CARBOPLATIN [Suspect]
     Dosage: (6 AUC), INTRAVENOUS
     Route: 042
     Dates: start: 20090417, end: 20090417
  4. LEVAQUIN [Concomitant]

REACTIONS (7)
  - DEHYDRATION [None]
  - DERMATITIS ACNEIFORM [None]
  - DIARRHOEA [None]
  - DRUG HYPERSENSITIVITY [None]
  - HYPOPHAGIA [None]
  - PYREXIA [None]
  - VIRAL RASH [None]
